FAERS Safety Report 6389029-4 (Version None)
Quarter: 2009Q4

REPORT INFORMATION
  Report Type: 
  Country: None (occurrence: None)
  Receive Date: 20091001
  Receipt Date: 20090922
  Transmission Date: 20100525
  Serious: Yes (Disabling)
  Sender: FDA-Public Use
  Company Number: ADR30152009

PATIENT
  Age: 67 Year
  Sex: Male

DRUGS (6)
  1. RAMIPRIL [Suspect]
     Indication: ANGINA PECTORIS
     Dosage: 10MG, 1/1 DAY
     Route: 048
     Dates: start: 20050824
  2. AMLODIPINE [Suspect]
     Indication: ANGINA PECTORIS
     Dosage: 10 MG , 1/1DAY
     Route: 048
     Dates: start: 20061120
  3. ATNEOLOL [Concomitant]
  4. GLICLAZIDE [Concomitant]
  5. GLUCOPHAGE [Concomitant]
  6. SIMVASTATIN [Concomitant]

REACTIONS (3)
  - HYPOGLYCAEMIA [None]
  - JEALOUS DELUSION [None]
  - SLEEP TERROR [None]
